FAERS Safety Report 18382692 (Version 1)
Quarter: 2020Q4

REPORT INFORMATION
  Report Type: Spontaneous
  Country: US (occurrence: US)
  Receive Date: 20201013
  Receipt Date: 20201013
  Transmission Date: 20210114
  Serious: Yes (Death, Hospitalization)
  Sender: FDA-Public Use
  Company Number: None

PATIENT
  Age: 66 Year
  Sex: Female
  Weight: 76.2 kg

DRUGS (1)
  1. TOPOTECAN [Suspect]
     Active Substance: TOPOTECAN HYDROCHLORIDE
     Dates: end: 20200906

REACTIONS (8)
  - Oxygen saturation decreased [None]
  - Fatigue [None]
  - Pneumocystis jirovecii pneumonia [None]
  - Metastases to liver [None]
  - Thrombocytopenia [None]
  - Neutropenia [None]
  - Peripheral swelling [None]
  - Confusional state [None]

NARRATIVE: CASE EVENT DATE: 20201009
